FAERS Safety Report 9506205 (Version 1)
Quarter: 2013Q1

REPORT INFORMATION
  Report Type: Spontaneous
  Country: US (occurrence: None)
  Receive Date: 20130220
  Receipt Date: 20130220
  Transmission Date: 20140127
  Serious: No
  Sender: FDA-Public Use
  Company Number: 1000040725

PATIENT
  Age: 55 Year
  Sex: Male

DRUGS (1)
  1. VIIBRYD (VILAZODONE HYDROCHLORIDE) [Suspect]
     Dates: start: 2012, end: 2012

REACTIONS (2)
  - Abnormal dreams [None]
  - Insomnia [None]
